FAERS Safety Report 11431119 (Version 3)
Quarter: 2015Q4

REPORT INFORMATION
  Report Type: Report from Study
  Country: CL (occurrence: CL)
  Receive Date: 20150828
  Receipt Date: 20151118
  Transmission Date: 20160304
  Serious: Yes (Hospitalization, Other)
  Sender: FDA-Public Use
  Company Number: PHHY2015CL084998

PATIENT
  Age: 76 Year
  Sex: Male

DRUGS (3)
  1. GLIVEC [Suspect]
     Active Substance: IMATINIB MESYLATE
     Dosage: 800 MG, UNK
     Route: 048
     Dates: start: 20150715
  2. OMEPRAZOLE. [Concomitant]
     Active Substance: OMEPRAZOLE
     Indication: PRODUCT USED FOR UNKNOWN INDICATION
     Dosage: UNK
     Route: 065
  3. GLIVEC [Suspect]
     Active Substance: IMATINIB MESYLATE
     Indication: GASTROINTESTINAL STROMAL TUMOUR
     Dosage: 400 MG, UNK
     Route: 065
     Dates: start: 20120220

REACTIONS (11)
  - Anaemia of malignant disease [Recovering/Resolving]
  - Blood creatinine increased [Unknown]
  - Face oedema [Not Recovered/Not Resolved]
  - No therapeutic response [Unknown]
  - Malignant neoplasm progression [Not Recovered/Not Resolved]
  - Abdominal mass [Unknown]
  - Recurrent cancer [Not Recovered/Not Resolved]
  - Ascites [Unknown]
  - Gastrointestinal stromal tumour [Not Recovered/Not Resolved]
  - Treatment failure [Unknown]
  - Metastases to peritoneum [Unknown]

NARRATIVE: CASE EVENT DATE: 20150702
